FAERS Safety Report 4294704-1 (Version None)
Quarter: 2004Q1

REPORT INFORMATION
  Report Type: 
  Country: None (occurrence: None)
  Receive Date: 20040211
  Receipt Date: 20040202
  Transmission Date: 20041129
  Serious: Yes (Death, Hospitalization, Other)
  Sender: FDA-Public Use
  Company Number: JP-JNJFOC-20040104956

PATIENT
  Age: 24 Year
  Sex: Male

DRUGS (2)
  1. RISPERDAL [Suspect]
     Indication: SCHIZOPHRENIA
     Dosage: 3 MG, IN 1 DAY,   ORAL   : 4 MG , ORAL
     Route: 048
  2. LITHIUM CARBONATE [Suspect]
     Dosage: 400 MG , IN 1 DAY, ORAL
     Route: 048

REACTIONS (9)
  - ANGER [None]
  - C-REACTIVE PROTEIN INCREASED [None]
  - DEPRESSED LEVEL OF CONSCIOUSNESS [None]
  - DRUG INTERACTION [None]
  - HAEMATURIA [None]
  - INJURY ASPHYXIATION [None]
  - MUTISM [None]
  - NEUROLEPTIC MALIGNANT SYNDROME [None]
  - PAIN [None]
